FAERS Safety Report 7259026-5 (Version None)
Quarter: 2011Q1

REPORT INFORMATION
  Report Type: 
  Country: None (occurrence: None)
  Receive Date: 20110129
  Receipt Date: 20100624
  Transmission Date: 20110831
  Serious: No
  Sender: FDA-Public Use
  Company Number: US-ABBOTT-10P-163-0653143-00

PATIENT
  Sex: Female

DRUGS (1)
  1. HUMIRA [Suspect]
     Indication: PSORIASIS

REACTIONS (10)
  - RASH MACULAR [None]
  - PARAESTHESIA [None]
  - INSOMNIA [None]
  - RASH PRURITIC [None]
  - RASH PAPULAR [None]
  - FORMICATION [None]
  - DECREASED APPETITE [None]
  - SCAB [None]
  - NAUSEA [None]
  - RASH PUSTULAR [None]
